FAERS Safety Report 25913164 (Version 1)
Quarter: 2025Q4

REPORT INFORMATION
  Report Type: Spontaneous
  Country: EU (occurrence: EU)
  Receive Date: 20251013
  Receipt Date: 20251013
  Transmission Date: 20260117
  Serious: Yes (Other)
  Sender: EXELIXIS
  Company Number: EU-IPSEN Group, Research and Development-2025-25077

PATIENT
  Age: 60 Year
  Sex: Male
  Weight: 70 kg

DRUGS (3)
  1. CABOMETYX [Suspect]
     Active Substance: CABOZANTINIB S-MALATE
     Indication: Renal neoplasm
     Dosage: 40 MG/DAY
     Route: 048
     Dates: start: 20230620, end: 20250523
  2. NIVOLUMAB [Suspect]
     Active Substance: NIVOLUMAB
     Indication: Renal neoplasm
     Dosage: 240 MG EVERY 14 DAYS (FIXED DOSE)
     Route: 042
     Dates: start: 20230620, end: 20250514
  3. LEVOTHYROXINE SODIUM [Concomitant]
     Active Substance: LEVOTHYROXINE SODIUM
     Indication: Hypothyroidism
     Dosage: UNK

REACTIONS (1)
  - Immune-mediated pancreatitis [Not Recovered/Not Resolved]

NARRATIVE: CASE EVENT DATE: 20250523
